FAERS Safety Report 19220634 (Version 2)
Quarter: 2021Q2

REPORT INFORMATION
  Report Type: Spontaneous
  Country: CN (occurrence: CN)
  Receive Date: 20210505
  Receipt Date: 20210518
  Transmission Date: 20210717
  Serious: Yes (Life-Threatening, Other)
  Sender: FDA-Public Use
  Company Number: CN-PFIZER INC-2021466377

PATIENT
  Age: 4 Year
  Sex: Male
  Weight: 15 kg

DRUGS (1)
  1. METHOTREXATE. [Suspect]
     Active Substance: METHOTREXATE
     Indication: B-CELL TYPE ACUTE LEUKAEMIA
     Dosage: 2250.000 MG, 1X/DAY
     Route: 041
     Dates: start: 20210412, end: 20210412

REACTIONS (6)
  - Agranulocytosis [Recovering/Resolving]
  - Granulocyte count decreased [Recovering/Resolving]
  - White blood cell count decreased [Recovering/Resolving]
  - Anaemia [Recovering/Resolving]
  - Myelosuppression [Recovering/Resolving]
  - Haemoglobin decreased [Recovering/Resolving]

NARRATIVE: CASE EVENT DATE: 20210414
